FAERS Safety Report 17186002 (Version 1)
Quarter: 2019Q4

REPORT INFORMATION
  Report Type: Spontaneous
  Country: SE (occurrence: SE)
  Receive Date: 20191220
  Receipt Date: 20191220
  Transmission Date: 20200122
  Serious: Yes (Hospitalization)
  Sender: FDA-Public Use
  Company Number: SE-ASTRAZENECA-2019SF81288

PATIENT
  Sex: Female

DRUGS (3)
  1. ATARAX [Suspect]
     Active Substance: HYDROXYZINE HYDROCHLORIDE
     Dosage: 630.0MG UNKNOWN
     Route: 065
     Dates: start: 20190616, end: 20190616
  2. PROPAVAN [Suspect]
     Active Substance: PROPIOMAZINE
     Dosage: 40 ST1.0G UNKNOWN
     Route: 048
     Dates: start: 20190616, end: 20190616
  3. QUETIAPINE. [Suspect]
     Active Substance: QUETIAPINE
     Dosage: 750.0MG UNKNOWN
     Route: 048
     Dates: start: 20190616, end: 20190616

REACTIONS (3)
  - Intentional self-injury [Unknown]
  - Intentional overdose [Unknown]
  - Akathisia [Unknown]

NARRATIVE: CASE EVENT DATE: 20190616
